FAERS Safety Report 7095389-1 (Version None)
Quarter: 2010Q4

REPORT INFORMATION
  Report Type: 
  Country: None (occurrence: None)
  Receive Date: 20101018
  Receipt Date: 20091123
  Transmission Date: 20110411
  Serious: Yes (Other)
  Sender: FDA-Public Use
  Company Number: US-WYE-H12287509

PATIENT
  Age: 54 Year
  Sex: Female
  Weight: 97.16 kg

DRUGS (4)
  1. PREMARIN [Suspect]
     Indication: HORMONE REPLACEMENT THERAPY
     Dosage: ^DOESN'T REMEMBER^, ORAL
     Route: 048
     Dates: start: 19960101, end: 19980101
  2. EFFEXOR [Concomitant]
  3. SYNTHROID [Concomitant]
  4. BLACK COHOSH (CIMICIFUGA) [Concomitant]

REACTIONS (1)
  - BREAST CANCER [None]
